FAERS Safety Report 8611559-2 (Version None)
Quarter: 2012Q3

REPORT INFORMATION
  Report Type: 
  Country: None (occurrence: None)
  Receive Date: 20120822
  Receipt Date: 20120815
  Transmission Date: 20120928
  Serious: Yes (Other)
  Sender: FDA-Public Use
  Company Number: PHHY2012ES071921

PATIENT
  Age: 62 Year
  Sex: Female

DRUGS (6)
  1. OMEPRAZOLE [Concomitant]
  2. CYCLOPHOSPHAMIDE [Suspect]
     Indication: BREAST CANCER
     Dosage: 600 MG/M2, UNK
  3. CHLORHEXIDINE GLUCONATE [Concomitant]
  4. DOXORUBICIN HYDROCHLORIDE [Suspect]
     Indication: BREAST CANCER
     Dosage: 60 MG/M2, UNK
  5. ANASTROZOLE [Suspect]
     Indication: HORMONE THERAPY
     Dosage: 1 MG, UNK
  6. DEXAMETHASONE [Concomitant]
     Dosage: 16 MG, UNK

REACTIONS (7)
  - SWELLING FACE [None]
  - PARAESTHESIA [None]
  - OSTEONECROSIS OF JAW [None]
  - PURULENT DISCHARGE [None]
  - OROANTRAL FISTULA [None]
  - OSTEONECROSIS [None]
  - STAPHYLOCOCCAL INFECTION [None]
